FAERS Safety Report 4942061-7 (Version None)
Quarter: 2006Q1

REPORT INFORMATION
  Report Type: 
  Country: None (occurrence: None)
  Receive Date: 20060313
  Receipt Date: 20050511
  Transmission Date: 20060701
  Serious: No
  Sender: FDA-Public Use
  Company Number: US-GLAXOSMITHKLINE-A0558109A

PATIENT
  Age: 24 Year
  Sex: Female

DRUGS (1)
  1. MEMBERS MARK NICOTINE GUM 2MG, ORIGINAL [Suspect]
     Dates: start: 20050509, end: 20050510

REACTIONS (2)
  - DRUG INEFFECTIVE [None]
  - NICOTINE DEPENDENCE [None]
